FAERS Safety Report 8037535-9 (Version None)
Quarter: 2012Q1

REPORT INFORMATION
  Report Type: 
  Country: None (occurrence: None)
  Receive Date: 20120111
  Receipt Date: 20120104
  Transmission Date: 20120608
  Serious: Yes (Other)
  Sender: FDA-Public Use
  Company Number: US-ASTRAZENECA-2012SE00906

PATIENT
  Age: 88 Year
  Sex: Female

DRUGS (2)
  1. NEXIUM [Suspect]
     Route: 048
  2. ZITHROMAX [Concomitant]

REACTIONS (2)
  - BRONCHITIS [None]
  - RESPIRATORY ARREST [None]
